FAERS Safety Report 24920642 (Version 1)
Quarter: 2025Q1

REPORT INFORMATION
  Report Type: Spontaneous
  Country: US (occurrence: US)
  Receive Date: 20250204
  Receipt Date: 20250204
  Transmission Date: 20250408
  Serious: Yes (Other)
  Sender: APOTEX
  Company Number: US-APOTEX-2025AP001636

PATIENT
  Age: 68 Year
  Sex: Female

DRUGS (1)
  1. ERLOTINIB [Suspect]
     Active Substance: ERLOTINIB
     Indication: Lung adenocarcinoma
     Dosage: 150 MILLIGRAM, QD
     Route: 048

REACTIONS (1)
  - Scleroderma-like reaction [Recovering/Resolving]
